FAERS Safety Report 12369134 (Version 2)
Quarter: 2021Q2

REPORT INFORMATION
  Report Type: Report from Study
  Country: ES (occurrence: ES)
  Receive Date: 20160513
  Receipt Date: 20210531
  Transmission Date: 20210716
  Serious: Yes (Death, Hospitalization, Other)
  Sender: FDA-Public Use
  Company Number: ES-AUROBINDO-AUR-APL-2016-05737

PATIENT
  Age: 48 Year
  Sex: Female

DRUGS (1)
  1. RIBAVIRIN. [Suspect]
     Active Substance: RIBAVIRIN
     Indication: PRODUCT USED FOR UNKNOWN INDICATION
     Dosage: 20 MG/KG, DAILY
     Route: 048
     Dates: start: 201504

REACTIONS (4)
  - Respiratory failure [Unknown]
  - Death [Fatal]
  - Cough [Unknown]
  - Wheezing [Unknown]
